FAERS Safety Report 25399879 (Version 2)
Quarter: 2025Q4

REPORT INFORMATION
  Report Type: Report from Study
  Country: CA (occurrence: CA)
  Receive Date: 20250605
  Receipt Date: 20251118
  Transmission Date: 20260118
  Serious: Yes (Other)
  Sender: TAKEDA
  Company Number: CA-TAKEDA-2025TUS051272

PATIENT
  Age: 80 Year
  Sex: Male

DRUGS (7)
  1. VEDOLIZUMAB [Suspect]
     Active Substance: VEDOLIZUMAB
     Indication: Colitis ulcerative
     Dosage: 300 MILLIGRAM
  2. VEDOLIZUMAB [Suspect]
     Active Substance: VEDOLIZUMAB
     Dosage: 300 MILLIGRAM
  3. AVASTIN [Concomitant]
     Active Substance: BEVACIZUMAB
     Dosage: UNK, Q6WEEKS
  4. IMURAN [Concomitant]
     Active Substance: AZATHIOPRINE
     Dosage: UNK
  5. PREDNISONE [Concomitant]
     Active Substance: PREDNISONE
     Dosage: 30 MILLIGRAM
  6. ATIVAN [Concomitant]
     Active Substance: LORAZEPAM
     Dosage: UNK
  7. CORTIFOAM [Concomitant]
     Active Substance: HYDROCORTISONE ACETATE
     Dosage: UNK

REACTIONS (2)
  - Prostate cancer [Not Recovered/Not Resolved]
  - Hormone level abnormal [Not Recovered/Not Resolved]
